FAERS Safety Report 7935390-6 (Version None)
Quarter: 2011Q4

REPORT INFORMATION
  Report Type: 
  Country: None (occurrence: None)
  Receive Date: 20111122
  Receipt Date: 20111116
  Transmission Date: 20120403
  Serious: Yes (Death, Hospitalization)
  Sender: FDA-Public Use
  Company Number: FR-MERCK-1108FRA00074

PATIENT
  Age: 72 Year
  Sex: Male
  Weight: 70 kg

DRUGS (6)
  1. JANUMET [Suspect]
     Route: 048
     Dates: start: 20110808, end: 20110814
  2. IRBESARTAN [Concomitant]
     Indication: HYPERTENSION
     Route: 048
     Dates: start: 20060812, end: 20110814
  3. NEBIVOLOL [Concomitant]
     Indication: HYPERTENSION
     Route: 048
     Dates: start: 20070205, end: 20110814
  4. CLOPIDOGREL [Concomitant]
     Indication: ARTERIAL DISORDER
     Route: 048
     Dates: start: 20040506, end: 20110814
  5. JANUMET [Suspect]
     Indication: TYPE 2 DIABETES MELLITUS
     Route: 048
     Dates: start: 20100531, end: 20110808
  6. AMLODIPINE [Concomitant]
     Indication: HYPERTENSION
     Route: 048
     Dates: start: 20050621, end: 20110814

REACTIONS (2)
  - METASTASES TO PERITONEUM [None]
  - OFF LABEL USE [None]
